FAERS Safety Report 7212909-4 (Version None)
Quarter: 2011Q1

REPORT INFORMATION
  Report Type: 
  Country: None (occurrence: None)
  Receive Date: 20110106
  Receipt Date: 20110103
  Transmission Date: 20110831
  Serious: Yes (Hospitalization)
  Sender: FDA-Public Use
  Company Number: DE-ABBOTT-10P-062-0681647-00

PATIENT
  Age: 83 Year
  Sex: Female
  Weight: 70 kg

DRUGS (8)
  1. COAPROVEL [Concomitant]
     Indication: HYPERTENSION
     Dosage: 150MG IRBESATAN/12.5MG HYDROCHLOROTHIAZID
     Route: 048
     Dates: start: 20100924
  2. BISOPROLOL [Concomitant]
     Indication: CORONARY ARTERY DISEASE
     Route: 048
     Dates: start: 20100924
  3. SIMVASTATIN [Concomitant]
     Indication: CARDIOVASCULAR EVENT PROPHYLAXIS
     Route: 048
     Dates: start: 20100924
  4. KLACID [Suspect]
     Indication: HELICOBACTER GASTRITIS
     Route: 048
     Dates: start: 20100924, end: 20100930
  5. AMOXICILLIN [Suspect]
     Indication: HELICOBACTER GASTRITIS
     Route: 048
     Dates: end: 20100930
  6. CLOBIDOGREL [Concomitant]
     Indication: STENT PLACEMENT
     Route: 048
     Dates: start: 20100923
  7. PANTOZOL [Concomitant]
     Indication: REFLUX OESOPHAGITIS
     Route: 048
     Dates: start: 20100901
  8. ASPIRIN [Concomitant]
     Indication: CORONARY ARTERY DISEASE
     Route: 048
     Dates: start: 20100923

REACTIONS (3)
  - DEHYDRATION [None]
  - ABDOMINAL PAIN UPPER [None]
  - DIARRHOEA [None]
